FAERS Safety Report 4553986-9 (Version None)
Quarter: 2005Q1

REPORT INFORMATION
  Report Type: 
  Country: None (occurrence: None)
  Receive Date: 20050118
  Receipt Date: 20041222
  Transmission Date: 20050727
  Serious: Yes (Other)
  Sender: FDA-Public Use
  Company Number: PHBS2004JP17230

PATIENT
  Age: 7 Year
  Sex: Male

DRUGS (5)
  1. METHOTREXATE [Concomitant]
     Dates: start: 20040101
  2. BUSULFAN [Concomitant]
     Dosage: 1 MG/KG, BID
     Route: 065
     Dates: start: 20040101
  3. CYCLOPHOSPHAMIDE [Concomitant]
     Dosage: 30 MG/KG/D
     Route: 065
     Dates: start: 20040101
  4. CYCLOSPORINE [Suspect]
     Indication: BONE MARROW TRANSPLANT
     Route: 065
     Dates: start: 20040101
  5. TEPA [Concomitant]
     Dosage: 150 MG/M2/DAY

REACTIONS (3)
  - ADENOVIRAL HAEMORRHAGIC CYSTITIS [None]
  - BONE MARROW DEPRESSION [None]
  - GRAFT VERSUS HOST DISEASE [None]
